FAERS Safety Report 12878286 (Version 2)
Quarter: 2016Q4

REPORT INFORMATION
  Report Type: Spontaneous
  Country: FR (occurrence: FR)
  Receive Date: 20161024
  Receipt Date: 20161115
  Transmission Date: 20170207
  Serious: Yes (Hospitalization)
  Sender: FDA-Public Use
  Company Number: FR-JNJFOC-20160611558

PATIENT
  Age: 15 Year
  Sex: Female

DRUGS (6)
  1. REMICADE [Suspect]
     Active Substance: INFLIXIMAB
     Indication: ANKYLOSING SPONDYLITIS
     Route: 042
     Dates: start: 2016
  2. REMICADE [Suspect]
     Active Substance: INFLIXIMAB
     Indication: ANKYLOSING SPONDYLITIS
     Route: 042
     Dates: start: 2016
  3. REMICADE [Suspect]
     Active Substance: INFLIXIMAB
     Indication: ANKYLOSING SPONDYLITIS
     Dosage: 3RD INFUSION
     Route: 042
     Dates: start: 20160608
  4. REMICADE [Suspect]
     Active Substance: INFLIXIMAB
     Indication: ANKYLOSING SPONDYLITIS
     Dosage: 3RD INFUSION
     Route: 042
     Dates: start: 20160608
  5. REMICADE [Suspect]
     Active Substance: INFLIXIMAB
     Indication: ANKYLOSING SPONDYLITIS
     Route: 042
     Dates: start: 20161004
  6. REMICADE [Suspect]
     Active Substance: INFLIXIMAB
     Indication: ANKYLOSING SPONDYLITIS
     Route: 042
     Dates: start: 20161004

REACTIONS (15)
  - Optic neuritis [Unknown]
  - Ankylosing spondylitis [Unknown]
  - Product use issue [Unknown]
  - Paraesthesia [Unknown]
  - Muscular weakness [Unknown]
  - Infusion related reaction [Recovered/Resolved]
  - Hot flush [Unknown]
  - Hyperhidrosis [Unknown]
  - Sensory loss [Unknown]
  - Fatigue [Recovered/Resolved]
  - Feeling cold [Recovered/Resolved]
  - Dizziness [Unknown]
  - Chills [Unknown]
  - Migraine with aura [Recovered/Resolved]
  - Off label use [Unknown]

NARRATIVE: CASE EVENT DATE: 2016
